FAERS Safety Report 13622089 (Version 1)
Quarter: 2017Q2

REPORT INFORMATION
  Report Type: Spontaneous
  Country: US (occurrence: US)
  Receive Date: 20170607
  Receipt Date: 20170607
  Transmission Date: 20170830
  Serious: No
  Sender: FDA-Public Use
  Company Number: US-ROCHE-1836406

PATIENT
  Sex: Female

DRUGS (2)
  1. XELODA [Suspect]
     Active Substance: CAPECITABINE
     Indication: PRODUCT USED FOR UNKNOWN INDICATION
     Dosage: FIVE TABLETS
     Route: 048
  2. XELODA [Suspect]
     Active Substance: CAPECITABINE
     Dosage: ONE TABLET
     Route: 048

REACTIONS (2)
  - No adverse event [Unknown]
  - Medication error [Unknown]
